FAERS Safety Report 11333330 (Version 1)
Quarter: 2015Q3

REPORT INFORMATION
  Report Type: Spontaneous
  Country: US (occurrence: US)
  Receive Date: 20150803
  Receipt Date: 20150803
  Transmission Date: 20151125
  Serious: Yes (Hospitalization)
  Sender: FDA-Public Use
  Company Number: US-ELI_LILLY_AND_COMPANY-US200709005795

PATIENT
  Sex: Female
  Weight: 104.31 kg

DRUGS (1)
  1. ZYPREXA [Suspect]
     Active Substance: OLANZAPINE
     Dosage: 10 MG, UNK
     Route: 048
     Dates: start: 19980521, end: 20020621

REACTIONS (7)
  - Diabetes mellitus [Not Recovered/Not Resolved]
  - Weight decreased [Unknown]
  - Chest pain [Unknown]
  - Blood cholesterol abnormal [Unknown]
  - Blood glucose [Recovered/Resolved]
  - Hypertension [Unknown]
  - Metabolic disorder [Unknown]

NARRATIVE: CASE EVENT DATE: 2003
